FAERS Safety Report 17410472 (Version 1)
Quarter: 2020Q1

REPORT INFORMATION
  Report Type: Spontaneous
  Country: IN (occurrence: IN)
  Receive Date: 20200212
  Receipt Date: 20200212
  Transmission Date: 20200409
  Serious: Yes (Hospitalization, Other)
  Sender: FDA-Public Use
  Company Number: IN-AMNEAL PHARMACEUTICALS-2020-AMRX-00445

PATIENT
  Age: 62 Year
  Sex: Female

DRUGS (1)
  1. TRIAMCINOLONE ACETONIDE. [Suspect]
     Active Substance: TRIAMCINOLONE ACETONIDE
     Indication: POST PROCEDURAL INFLAMMATION
     Dosage: 0.5 CC OF TRIAMCINOLONE ACETONIDE SUSPENSION, 40 MG/ML
     Route: 031

REACTIONS (4)
  - Necrotising scleritis [Recovered/Resolved]
  - Product deposit [Recovered/Resolved]
  - Scleral deposits [Recovered/Resolved]
  - Keratitis fungal [Recovered/Resolved]
